FAERS Safety Report 20492326 (Version 3)
Quarter: 2022Q1

REPORT INFORMATION
  Report Type: Report from Study
  Country: IT (occurrence: IT)
  Receive Date: 20220218
  Receipt Date: 20220330
  Transmission Date: 20220423
  Serious: Yes (Other)
  Sender: FDA-Public Use
  Company Number: None

PATIENT
  Age: 62 Year
  Sex: Female
  Weight: 46 kg

DRUGS (2)
  1. DOXORUBICIN HYDROCHLORIDE [Suspect]
     Active Substance: DOXORUBICIN HYDROCHLORIDE
     Indication: Serous cystadenocarcinoma ovary
     Route: 042
     Dates: start: 20220113, end: 20220113
  2. CARBOPLATIN [Concomitant]
     Active Substance: CARBOPLATIN
     Indication: Serous cystadenocarcinoma ovary
     Route: 042

REACTIONS (4)
  - Back pain [Recovered/Resolved]
  - Off label use [Recovered/Resolved]
  - Pruritus [Recovered/Resolved]
  - Rash [Recovered/Resolved]

NARRATIVE: CASE EVENT DATE: 20220113
